FAERS Safety Report 8073547-7 (Version None)
Quarter: 2011Q4

REPORT INFORMATION
  Report Type: 
  Country: None (occurrence: None)
  Receive Date: 20111221
  Receipt Date: 20110804
  Transmission Date: 20120403
  Serious: Yes (Hospitalization)
  Sender: FDA-Public Use
  Company Number: PHHY2011US27370

PATIENT
  Age: 12 Year
  Sex: Female
  Weight: 50.6 kg

DRUGS (9)
  1. FOLATE SODIUM (FOLATE SODIUM) [Concomitant]
  2. ASPIRIN [Concomitant]
  3. EXJADE [Suspect]
     Indication: SICKLE CELL ANAEMIA
     Dosage: ORAL, 1750 MG, DAILY, ORAL
     Route: 048
     Dates: end: 20110414
  4. EXJADE [Suspect]
     Indication: CHELATION THERAPY
     Dosage: ORAL, 1750 MG, DAILY, ORAL
     Route: 048
     Dates: end: 20110414
  5. EXJADE [Suspect]
     Indication: SICKLE CELL ANAEMIA
     Dosage: ORAL, 1750 MG, DAILY, ORAL
     Route: 048
     Dates: start: 20060301
  6. EXJADE [Suspect]
     Indication: CHELATION THERAPY
     Dosage: ORAL, 1750 MG, DAILY, ORAL
     Route: 048
     Dates: start: 20060301
  7. EXJADE [Suspect]
     Indication: SICKLE CELL ANAEMIA
     Dosage: ORAL, 1750 MG, DAILY, ORAL
     Route: 048
     Dates: start: 20110207
  8. EXJADE [Suspect]
     Indication: CHELATION THERAPY
     Dosage: ORAL, 1750 MG, DAILY, ORAL
     Route: 048
     Dates: start: 20110207
  9. AMOXICILLIN [Concomitant]

REACTIONS (4)
  - TRANSAMINASES INCREASED [None]
  - ALANINE AMINOTRANSFERASE INCREASED [None]
  - ASPARTATE AMINOTRANSFERASE INCREASED [None]
  - PYREXIA [None]
